FAERS Safety Report 8444597-3 (Version None)
Quarter: 2012Q2

REPORT INFORMATION
  Report Type: 
  Country: None (occurrence: None)
  Receive Date: 20120618
  Receipt Date: 20120608
  Transmission Date: 20120825
  Serious: Yes (Other)
  Sender: FDA-Public Use
  Company Number: FI-BAYER-2012-056615

PATIENT
  Age: 22 Year
  Sex: Female

DRUGS (2)
  1. FLUTICASONE PROPIONATE [Concomitant]
     Indication: HYPERSENSITIVITY
     Route: 045
  2. YASMIN [Suspect]
     Dosage: UNK
     Route: 048
     Dates: start: 20040101, end: 20120301

REACTIONS (10)
  - ARRHYTHMIA [None]
  - HEADACHE [None]
  - ABDOMINAL PAIN [None]
  - DYSPEPSIA [None]
  - PERSONALITY CHANGE [None]
  - PYREXIA [None]
  - IMMUNODEFICIENCY [None]
  - HYPOAESTHESIA [None]
  - FATIGUE [None]
  - NIGHT SWEATS [None]
